FAERS Safety Report 4658930-1 (Version None)
Quarter: 2005Q2

REPORT INFORMATION
  Report Type: 
  Country: None (occurrence: None)
  Receive Date: 20050509
  Receipt Date: 20050425
  Transmission Date: 20051028
  Serious: Yes (Death)
  Sender: FDA-Public Use
  Company Number: 05P-028-0298713-00

PATIENT
  Age: 78 Year
  Sex: Male

DRUGS (6)
  1. DILAUDID [Suspect]
     Indication: PAIN
     Dosage: 0.5 MG, 1 IN 1 HR, SUBCUTANEOUS
     Route: 058
     Dates: start: 20040715, end: 20040715
  2. LORAZEPAM [Suspect]
     Dosage: 1 MG, TWO DOSES WITHIN 30 MIN, SUBCUTANEOUS
     Route: 058
     Dates: start: 20040715
  3. ATROPINE [Suspect]
     Dosage: 0.6 MG, EVERY 4 HRS, SUBCTUANEOUS
     Route: 058
     Dates: start: 20040712
  4. METOCLOPRAMIDE [Concomitant]
  5. SALBUTAMOL [Concomitant]
  6. OXYGEN [Concomitant]

REACTIONS (11)
  - CYANOSIS [None]
  - DYSKINESIA [None]
  - HYPERHIDROSIS [None]
  - HYPOVENTILATION [None]
  - INCORRECT DOSE ADMINISTERED [None]
  - LUNG DISORDER [None]
  - MIOSIS [None]
  - OVERDOSE [None]
  - RESPIRATORY RATE INCREASED [None]
  - SHOCK [None]
  - TACHYCARDIA [None]
